FAERS Safety Report 7737348-9 (Version None)
Quarter: 2011Q3

REPORT INFORMATION
  Report Type: 
  Country: None (occurrence: None)
  Receive Date: 20110908
  Receipt Date: 20110902
  Transmission Date: 20111222
  Serious: Yes (Other)
  Sender: FDA-Public Use
  Company Number: US-GLAXOSMITHKLINE-A0943307A

PATIENT
  Age: 35 Year
  Sex: Female

DRUGS (1)
  1. NICODERM CQ [Suspect]
     Indication: SMOKING CESSATION THERAPY
     Route: 062
     Dates: start: 20110816

REACTIONS (5)
  - PAIN IN EXTREMITY [None]
  - DEPRESSION [None]
  - IRRITABILITY [None]
  - ANGER [None]
  - AGGRESSION [None]
